FAERS Safety Report 24247764 (Version 1)
Quarter: 2024Q3

REPORT INFORMATION
  Report Type: Spontaneous
  Country: FR (occurrence: FR)
  Receive Date: 20240826
  Receipt Date: 20240826
  Transmission Date: 20241017
  Serious: Yes (Hospitalization, Other)
  Sender: AUROBINDO
  Company Number: FR-AFSSAPS-LL2024001561

PATIENT
  Age: 85 Year
  Sex: Male
  Weight: 56.6 kg

DRUGS (3)
  1. SERTRALINE [Suspect]
     Active Substance: SERTRALINE HYDROCHLORIDE
     Indication: Behaviour disorder
     Dosage: 25 MILLIGRAM, ONCE A DAY
     Route: 048
     Dates: start: 20240703, end: 20240719
  2. AMIODARONE [Suspect]
     Active Substance: AMIODARONE
     Indication: Dilated cardiomyopathy
     Dosage: 200 MILLIGRAM, ONCE A DAY
     Route: 048
     Dates: end: 20240719
  3. RISPERDAL [Suspect]
     Active Substance: RISPERIDONE
     Indication: Behaviour disorder
     Dosage: 0.75 MILLIGRAM, ONCE A DAY (1 MG /ML : 0.25 MG LE MATIN, 0.5 MG LE SOIR)
     Route: 048
     Dates: start: 20240530, end: 20240725

REACTIONS (1)
  - Electrocardiogram QT prolonged [Recovering/Resolving]

NARRATIVE: CASE EVENT DATE: 20240709
